FAERS Safety Report 7414880 (Version 3)
Quarter: 2016Q3

REPORT INFORMATION
  Report Type: Report from Study
  Country: US (occurrence: US)
  Receive Date: 20100609
  Receipt Date: 20160915
  Transmission Date: 20161109
  Serious: Yes (Hospitalization, Other)
  Sender: FDA-Public Use
  Company Number: US-ROCHE-708118

PATIENT
  Age: 67 Year
  Sex: Female
  Weight: 72.8 kg

DRUGS (4)
  1. BEVACIZUMAB [Suspect]
     Active Substance: BEVACIZUMAB
     Indication: CARCINOID TUMOUR
     Dosage: FREQUENCY : OVER 30-90 MIN ON DAYS 1 AND 15, ON 30 APRIL 2010, PATIENT REMOVED FROM STUDY.?COURSE 1
     Route: 042
  2. TEMSIROLIMUS [Suspect]
     Active Substance: TEMSIROLIMUS
     Dosage: DOSE REDUCED. ON 30 APRIL 2010, PATIENT REMOVED FROM STUDY.
     Route: 042
  3. TEMSIROLIMUS [Suspect]
     Active Substance: TEMSIROLIMUS
     Indication: CARCINOID TUMOUR
     Dosage: FREQUENCY : ON DAYS 1,8,15,22
     Route: 042
  4. BEVACIZUMAB [Suspect]
     Active Substance: BEVACIZUMAB
     Dosage: COURSE 2
     Route: 042

REACTIONS (7)
  - Anal abscess [Unknown]
  - Epistaxis [Unknown]
  - Hypophosphataemia [Unknown]
  - Anxiety [Recovered/Resolved]
  - Atrial fibrillation [Recovered/Resolved]
  - Anxiety [Unknown]
  - Pulmonary haemorrhage [Unknown]

NARRATIVE: CASE EVENT DATE: 20100416
